FAERS Safety Report 19445435 (Version 2)
Quarter: 2022Q1

REPORT INFORMATION
  Report Type: Spontaneous
  Country: US (occurrence: US)
  Receive Date: 20210622
  Receipt Date: 20220201
  Transmission Date: 20220423
  Serious: Yes (Hospitalization, Other)
  Sender: FDA-Public Use
  Company Number: US-SA-2021SA195631

PATIENT
  Age: 57 Year
  Sex: Male

DRUGS (11)
  1. ELOXATIN [Suspect]
     Active Substance: OXALIPLATIN
     Indication: Colon cancer
     Dosage: UNK
     Route: 048
  2. LONSURF [Suspect]
     Active Substance: TIPIRACIL HYDROCHLORIDE\TRIFLURIDINE
     Indication: Colon cancer
     Dosage: 45 MG,1 IN 0.5 D
     Route: 048
     Dates: start: 20210322
  3. LONSURF [Suspect]
     Active Substance: TIPIRACIL HYDROCHLORIDE\TRIFLURIDINE
     Dosage: 2 WEEKS ON/2 WEEKS OFF
     Dates: start: 20210412
  4. BIKTARVY [Concomitant]
     Active Substance: BICTEGRAVIR SODIUM\EMTRICITABINE\TENOFOVIR ALAFENAMIDE FUMARATE
  5. AMLODIPINE [Concomitant]
     Active Substance: AMLODIPINE BESYLATE
  6. CANDESARTAN [Concomitant]
     Active Substance: CANDESARTAN
  7. METOPROLOL [Concomitant]
     Active Substance: METOPROLOL
  8. OMEPRAZOLE [Concomitant]
     Active Substance: OMEPRAZOLE
  9. LOPERAMIDE [Concomitant]
     Active Substance: LOPERAMIDE
  10. ONDANSETRON [Concomitant]
     Active Substance: ONDANSETRON
  11. SPIRONOLACTONE [Concomitant]
     Active Substance: SPIRONOLACTONE

REACTIONS (7)
  - Supraventricular tachycardia [Unknown]
  - Somnolence [Not Recovered/Not Resolved]
  - Anorectal discomfort [Unknown]
  - Dehydration [Unknown]
  - Anaemia [Unknown]
  - Hypokalaemia [Unknown]
  - Fatigue [Unknown]

NARRATIVE: CASE EVENT DATE: 20210101
